FAERS Safety Report 13655933 (Version 2)
Quarter: 2017Q2

REPORT INFORMATION
  Report Type: Spontaneous
  Country: US (occurrence: US)
  Receive Date: 20170615
  Receipt Date: 20170621
  Transmission Date: 20170830
  Serious: Yes (Hospitalization, Other)
  Sender: FDA-Public Use
  Company Number: US-DRREDDYS-USA/USA/17/0091403

PATIENT
  Age: 59 Year
  Sex: Male

DRUGS (4)
  1. TACROLIMUS. [Suspect]
     Active Substance: TACROLIMUS
     Route: 048
  2. MYCOPHENOLATE MOFETIL. [Suspect]
     Active Substance: MYCOPHENOLATE MOFETIL
     Indication: IMMUNOSUPPRESSION
     Route: 065
  3. TACROLIMUS. [Suspect]
     Active Substance: TACROLIMUS
     Indication: IMMUNOSUPPRESSION
     Dosage: 0.1-0.15 MG/KG/DAY DOSING
     Route: 048
  4. METHYLPREDNISOLONE. [Suspect]
     Active Substance: METHYLPREDNISOLONE
     Indication: IMMUNOSUPPRESSION
     Route: 065

REACTIONS (7)
  - Congestive cardiomyopathy [Not Recovered/Not Resolved]
  - Pulmonary oedema [Unknown]
  - Ejection fraction decreased [Unknown]
  - Encephalopathy [Recovered/Resolved]
  - Cardiotoxicity [Not Recovered/Not Resolved]
  - Spinal compression fracture [Unknown]
  - Ventricular hypertrophy [Unknown]
